FAERS Safety Report 24167534 (Version 1)
Quarter: 2024Q3

REPORT INFORMATION
  Report Type: Spontaneous
  Country: US (occurrence: None)
  Receive Date: 20240801
  Receipt Date: 20240801
  Transmission Date: 20241017
  Serious: Yes (unspecified)
  Sender: Public
  Company Number: None

PATIENT
  Age: 47 Year
  Sex: Female
  Weight: 52.2 kg

DRUGS (1)
  1. WILLOW BALM NATURES WILLOW PAIN RELIEVING CRM [Suspect]
     Active Substance: MENTHOL
     Indication: Analgesic therapy
     Dates: start: 20240712, end: 20240713

REACTIONS (2)
  - Burning sensation [None]
  - Blister [None]

NARRATIVE: CASE EVENT DATE: 20240712
